FAERS Safety Report 9624710 (Version 2)
Quarter: 2014Q1

REPORT INFORMATION
  Report Type: Spontaneous
  Country: JP (occurrence: None)
  Receive Date: 20131010
  Receipt Date: 20140205
  Transmission Date: 20141002
  Serious: Yes (Death, Hospitalization, Other)
  Sender: FDA-Public Use
  Company Number: CO-OR-JP-2013-112

PATIENT
  Age: 56 Year
  Sex: Male

DRUGS (4)
  1. PREDNISOLONE [Suspect]
     Indication: THROMBOTIC THROMBOCYTOPENIC PURPURA
     Route: 048
     Dates: start: 2007
  2. METHYLPREDNISOLONE [Concomitant]
  3. VINCRISTINE [Concomitant]
  4. RITUXIMAB [Concomitant]

REACTIONS (4)
  - Coma [None]
  - No therapeutic response [None]
  - Staphylococcal sepsis [None]
  - General physical health deterioration [None]
